FAERS Safety Report 22238128 (Version 1)
Quarter: 2023Q2

REPORT INFORMATION
  Report Type: Report from Study
  Country: US (occurrence: US)
  Receive Date: 20230421
  Receipt Date: 20230421
  Transmission Date: 20230722
  Serious: Yes (Other)
  Sender: FDA-Public Use
  Company Number: US-ABBVIE-4735759

PATIENT
  Age: 59 Year
  Sex: Female

DRUGS (2)
  1. RINVOQ [Suspect]
     Active Substance: UPADACITINIB
     Indication: Rheumatoid arthritis
     Dosage: RESTARTED.?RINVOQ ER 15 MG TABLET BY MOUTH DAILY
     Route: 048
     Dates: start: 202304
  2. RINVOQ [Suspect]
     Active Substance: UPADACITINIB
     Indication: Rheumatoid arthritis
     Route: 048
     Dates: end: 2020

REACTIONS (6)
  - Pulmonary fibrosis [Unknown]
  - Thirst [Unknown]
  - Pyrexia [Recovered/Resolved]
  - Cough [Recovering/Resolving]
  - Chills [Not Recovered/Not Resolved]
  - Night sweats [Recovering/Resolving]

NARRATIVE: CASE EVENT DATE: 20200201
